FAERS Safety Report 14519518 (Version 1)
Quarter: 2018Q1

REPORT INFORMATION
  Report Type: Spontaneous
  Country: US (occurrence: US)
  Receive Date: 20180209
  Receipt Date: 20180209
  Transmission Date: 20180509
  Serious: Yes (Other)
  Sender: FDA-Public Use
  Company Number: None

PATIENT
  Age: 53 Year
  Sex: Female
  Weight: 62.1 kg

DRUGS (7)
  1. OXYCODONE 10/325 [Suspect]
     Active Substance: ACETAMINOPHEN\OXYCODONE HYDROCHLORIDE
     Indication: INTERVERTEBRAL DISC DEGENERATION
     Dosage: ?          QUANTITY:100 TABLET(S);?
     Route: 048
     Dates: start: 20180102, end: 20180209
  2. LAMISIL [Concomitant]
     Active Substance: TERBINAFINE HYDROCHLORIDE
  3. AUGMENTING [Concomitant]
  4. ARNICA [Concomitant]
     Active Substance: ARNICA MONTANA FLOWER
  5. MILK THISTLE [Concomitant]
     Active Substance: DIETARY SUPPLEMENT\HERBALS\MILK THISTLE
  6. OXYCODONE 10/325 [Suspect]
     Active Substance: ACETAMINOPHEN\OXYCODONE HYDROCHLORIDE
     Indication: INTERVERTEBRAL DISC PROTRUSION
     Dosage: ?          QUANTITY:100 TABLET(S);?
     Route: 048
     Dates: start: 20180102, end: 20180209
  7. LYSINE [Concomitant]
     Active Substance: LYSINE

REACTIONS (7)
  - Arthralgia [None]
  - Anxiety [None]
  - Bedridden [None]
  - Vision blurred [None]
  - Inadequate analgesia [None]
  - Influenza like illness [None]
  - Withdrawal syndrome [None]

NARRATIVE: CASE EVENT DATE: 20180102
